FAERS Safety Report 7708323-5 (Version None)
Quarter: 2011Q3

REPORT INFORMATION
  Report Type: 
  Country: None (occurrence: None)
  Receive Date: 20110825
  Receipt Date: 20110818
  Transmission Date: 20111222
  Serious: No
  Sender: FDA-Public Use
  Company Number: US-BIOGENIDEC-2011BI031820

PATIENT
  Age: 50 Year
  Sex: Female

DRUGS (1)
  1. AVONEX [Suspect]
     Indication: MULTIPLE SCLEROSIS
     Route: 030
     Dates: start: 20101216, end: 20110224

REACTIONS (4)
  - VOMITING [None]
  - INFLUENZA LIKE ILLNESS [None]
  - DECREASED APPETITE [None]
  - PAROSMIA [None]
